FAERS Safety Report 21533959 (Version 4)
Quarter: 2022Q4

REPORT INFORMATION
  Report Type: Report from Study
  Country: US (occurrence: US)
  Receive Date: 20221101
  Receipt Date: 20221215
  Transmission Date: 20230113
  Serious: Yes (Hospitalization)
  Sender: FDA-Public Use
  Company Number: US-NOVARTISTESTPH-NVSC2022US245580

PATIENT
  Sex: Female

DRUGS (1)
  1. ENTRESTO [Suspect]
     Active Substance: SACUBITRIL\VALSARTAN
     Indication: Product used for unknown indication
     Dosage: 97/103 MG, BID
     Route: 048
     Dates: start: 202210

REACTIONS (9)
  - Dehydration [Unknown]
  - Abdominal discomfort [Unknown]
  - Sinus disorder [Unknown]
  - Rhinorrhoea [Unknown]
  - Weight decreased [Unknown]
  - Fatigue [Recovering/Resolving]
  - Cough [Unknown]
  - Diarrhoea [Unknown]
  - Nausea [Unknown]
